FAERS Safety Report 14550762 (Version 2)
Quarter: 2018Q1

REPORT INFORMATION
  Report Type: Spontaneous
  Country: US (occurrence: US)
  Receive Date: 20180220
  Receipt Date: 20180326
  Transmission Date: 20180509
  Serious: Yes (Death, Hospitalization, Other)
  Sender: FDA-Public Use
  Company Number: US-LUNDBECK-DKLU2040119

PATIENT
  Age: 76 Year
  Sex: Female

DRUGS (2)
  1. NORTHERA [Suspect]
     Active Substance: DROXIDOPA
     Indication: ORTHOSTATIC HYPOTENSION
     Dosage: OVERDOSE: 2700MG
     Route: 048
     Dates: start: 20161222
  2. MIDODRINE [Concomitant]
     Active Substance: MIDODRINE
     Indication: PRODUCT USED FOR UNKNOWN INDICATION
     Route: 065

REACTIONS (8)
  - Cerebral haemorrhage [Fatal]
  - Subdural haematoma [Fatal]
  - Diabetes mellitus [Unknown]
  - Fall [Unknown]
  - Thrombocytopenia [Fatal]
  - Hypertension [Unknown]
  - Acute myeloid leukaemia [Fatal]
  - Prescribed overdose [Unknown]

NARRATIVE: CASE EVENT DATE: 20171128
